FAERS Safety Report 9437045 (Version 1)
Quarter: 2013Q3

REPORT INFORMATION
  Report Type: Spontaneous
  Country: DE (occurrence: DE)
  Receive Date: 20130802
  Receipt Date: 20130802
  Transmission Date: 20140515
  Serious: Yes (Hospitalization, Other)
  Sender: FDA-Public Use
  Company Number: DE-PFIZER INC-2013223386

PATIENT
  Age: 57 Year
  Sex: Male

DRUGS (1)
  1. TREVILOR RETARD [Suspect]
     Dosage: UNK

REACTIONS (3)
  - Accident [Unknown]
  - Dysphagia [Unknown]
  - Incorrect route of drug administration [Unknown]
